FAERS Safety Report 5232105-X (Version None)
Quarter: 2007Q1

REPORT INFORMATION
  Report Type: 
  Country: None (occurrence: None)
  Receive Date: 20061201
  Receipt Date: 20060906
  Transmission Date: 20070707
  Serious: No
  Sender: FDA-Public Use
  Company Number: US200609001127

PATIENT
  Sex: Male

DRUGS (1)
  1. CYMBALTA [Suspect]
     Indication: BURNING SENSATION
     Dosage: 30 MG
     Dates: start: 20060801

REACTIONS (2)
  - BURNING SENSATION [None]
  - SOMNOLENCE [None]
